FAERS Safety Report 13737530 (Version 2)
Quarter: 2017Q3

REPORT INFORMATION
  Report Type: Spontaneous
  Country: CH (occurrence: CH)
  Receive Date: 20170710
  Receipt Date: 20170811
  Transmission Date: 20171127
  Serious: Yes (Hospitalization, Congenital Anomaly)
  Sender: FDA-Public Use
  Company Number: CH-PFIZER INC-2017292057

PATIENT
  Sex: Female
  Weight: 1.95 kg

DRUGS (15)
  1. NEUPOGEN [Suspect]
     Active Substance: FILGRASTIM
     Indication: NEUTROPENIA
     Dosage: 30 MILLION IU, UNK (1 ADMINISTRATION/DAY FOR 5 DAYS ON 4 OCCASIONS: 25 TO 29AUG2016, 07 TO 11SEP2016
     Route: 064
     Dates: start: 20160825, end: 20161009
  2. TAVEGYL [Concomitant]
     Active Substance: CLEMASTINE FUMARATE
     Indication: DRUG HYPERSENSITIVITY
     Dosage: 2 MG, WEEKLY
     Route: 064
     Dates: start: 20161017, end: 20161227
  3. EMEND [Concomitant]
     Active Substance: APREPITANT
     Indication: PROPHYLAXIS OF NAUSEA AND VOMITING
     Dosage: 125 MG, A SINGLE DOSE ON DAY 1 OF EACH CHEMOTHERAPY CYCLE OF DOXORUBICIN / CYCLOPHOSPHAMIDE
     Route: 064
     Dates: start: 20160822, end: 20161004
  4. CYCLOPHOSPHAMIDE ANHYDROUS. [Suspect]
     Active Substance: CYCLOPHOSPHAMIDE ANHYDROUS
     Indication: INFLAMMATORY CARCINOMA OF THE BREAST
     Dosage: 600 MG/M2, CYCLIC (1000 MG, CYCLIC, ON DAY 1 OF EVERY CHEMOTHERAPY CYCLE)
     Route: 064
     Dates: start: 20160822, end: 20161004
  5. SOLU-MEDROL [Concomitant]
     Active Substance: METHYLPREDNISOLONE SODIUM SUCCINATE
     Indication: PROPHYLAXIS OF NAUSEA AND VOMITING
     Dosage: 125 MG, UNK (ADMINISTRATION ON 22AUG2016, 06SEP2016, 20SEP2016 AND 04OCT2016)
     Route: 064
     Dates: start: 20160822, end: 20161004
  6. ZOFRAN [Concomitant]
     Active Substance: ONDANSETRON HYDROCHLORIDE
     Indication: PROPHYLAXIS OF NAUSEA AND VOMITING
     Dosage: 4 MG, ON DAYS 2 AND 3 OF EVERY CHEMOTHERAPY CYCLE WITH DOXORUBICIN / CYCLOPHOSPHAMIDE
     Route: 064
     Dates: start: 20160823, end: 20161006
  7. LAMICTAL [Suspect]
     Active Substance: LAMOTRIGINE
     Indication: EPILEPSY
     Dosage: 100 MG, 2X/DAY
     Route: 064
  8. EMEND [Concomitant]
     Active Substance: APREPITANT
     Dosage: 80 MG, ON DAYS 2 AND 3 OF EVERY CHEMOTHERAPY CYCLE OF DOXORUBICIN / CYCLOPHOSPHAMIDE
     Route: 064
     Dates: start: 20160823, end: 20161006
  9. CELESTONE [Concomitant]
     Active Substance: BETAMETHASONE
     Indication: MATERNAL THERAPY TO ENHANCE FOETAL LUNG MATURITY
     Dosage: UNK
     Dates: start: 20161228
  10. DOXORUBICIN HCL [Suspect]
     Active Substance: DOXORUBICIN HYDROCHLORIDE
     Indication: INFLAMMATORY CARCINOMA OF THE BREAST
     Dosage: 60 MG/M2, CYCLIC (100 MG PER CYCLE, ON DAY 1 OF EVERY CHEMOTHERAPY CYCLE)
     Route: 064
     Dates: start: 20160822, end: 20161004
  11. TAXOL [Suspect]
     Active Substance: PACLITAXEL
     Indication: INFLAMMATORY CARCINOMA OF THE BREAST
     Dosage: 80 MG/M2, WEEKLY,11 ADMINISTRATIONS  IN TOTAL, EXACT DATES UNKNOWN.
     Route: 064
     Dates: start: 20161017, end: 20161227
  12. PRIMPERAN [Concomitant]
     Active Substance: METOCLOPRAMIDE HYDROCHLORIDE
     Indication: PROPHYLAXIS OF NAUSEA AND VOMITING
     Dosage: UNK UNK, TREATMENT IN RESERVE IF NECESSARY
     Route: 064
     Dates: start: 20160822, end: 20161227
  13. LAMICTAL [Suspect]
     Active Substance: LAMOTRIGINE
     Dosage: 200 MG, 2X/DAY
     Route: 064
     Dates: start: 20161115
  14. ZANTAC [Concomitant]
     Active Substance: RANITIDINE HYDROCHLORIDE
     Indication: DRUG HYPERSENSITIVITY
     Dosage: 50 MG, WEEKLY
     Route: 064
     Dates: start: 20161017, end: 20161227
  15. ZOFRAN [Concomitant]
     Active Substance: ONDANSETRON HYDROCHLORIDE
     Indication: PROPHYLAXIS OF NAUSEA AND VOMITING
     Dosage: 8 MG, UNK (ADMINISTRATION ON 22AUG2016, 06SEP2016, 20SEP2016 AND 04OCT2016)
     Route: 064
     Dates: start: 20160822, end: 20161004

REACTIONS (5)
  - Neonatal respiratory distress syndrome [Recovered/Resolved]
  - Haemangioma of skin [Not Recovered/Not Resolved]
  - Maternal exposure during pregnancy [Recovered/Resolved]
  - Premature baby [Recovered/Resolved]
  - Hyperbilirubinaemia neonatal [Recovered/Resolved]

NARRATIVE: CASE EVENT DATE: 2016
